FAERS Safety Report 7563883-2 (Version None)
Quarter: 2011Q2

REPORT INFORMATION
  Report Type: 
  Country: None (occurrence: None)
  Receive Date: 20110622
  Receipt Date: 20110615
  Transmission Date: 20111010
  Serious: Yes (Hospitalization)
  Sender: FDA-Public Use
  Company Number: US-B.I. PHARMACEUTICALS,INC./RIDGEFIELD-2011-BP-14185BP

PATIENT
  Age: 81 Year
  Sex: Female

DRUGS (8)
  1. PRAVASTATIN [Concomitant]
     Indication: BLOOD CHOLESTEROL INCREASED
     Dosage: 20 MG
     Route: 048
  2. OMEPRAZOLE [Concomitant]
     Indication: GASTROOESOPHAGEAL REFLUX DISEASE
     Route: 048
  3. DILTIAZEM [Concomitant]
     Indication: HYPERTENSION
     Dosage: 240 MG
     Route: 048
  4. VITAMIN D [Concomitant]
     Indication: SUPPLEMENTATION THERAPY
     Route: 048
  5. PRADAXA [Suspect]
     Indication: ATRIAL FIBRILLATION
     Dosage: 300 MG
     Route: 048
     Dates: start: 20110508
  6. MULTAQ [Concomitant]
     Indication: BRADYCARDIA
     Dosage: 400 MG
     Route: 048
  7. MAALOX [Concomitant]
     Indication: FLATULENCE
     Route: 048
  8. MIRALAX [Concomitant]
     Indication: CONSTIPATION
     Route: 048

REACTIONS (8)
  - OROPHARYNGEAL PAIN [None]
  - CONTUSION [None]
  - SINUS DISORDER [None]
  - RECTAL HAEMORRHAGE [None]
  - ASTHENIA [None]
  - BLOOD PRESSURE INCREASED [None]
  - ABDOMINAL DISTENSION [None]
  - DIARRHOEA [None]
